FAERS Safety Report 8684751 (Version 3)
Quarter: 2012Q4

REPORT INFORMATION
  Report Type: 
  Country: JP (occurrence: JP)
  Receive Date: 20120726
  Receipt Date: 20121108
  Transmission Date: 20130627
  Serious: Yes (Hospitalization)
  Sender: FDA-Public Use
  Company Number: JP-ABBOTT-12P-087-0959343-00

PATIENT
  Age: 78 Year
  Sex: Male

DRUGS (5)
  1. LEUPLIN SR FOR INJECTION 11.25 MG [Suspect]
     Indication: PROSTATE CANCER
     Route: 058
     Dates: start: 20120314, end: 20120314
  2. CASODEX [Concomitant]
     Indication: PROSTATE CANCER
     Route: 048
     Dates: start: 20120201, end: 20120525
  3. CASODEX [Concomitant]
     Route: 048
     Dates: start: 20120606
  4. NORVASC [Concomitant]
     Indication: HYPERTENSION
     Route: 048
  5. DIOVAN [Concomitant]
     Indication: HYPERTENSION
     Route: 048

REACTIONS (1)
  - Interstitial lung disease [Recovered/Resolved]
